FAERS Safety Report 12448992 (Version 1)
Quarter: 2016Q2

REPORT INFORMATION
  Report Type: Spontaneous
  Country: FR (occurrence: FR)
  Receive Date: 20160608
  Receipt Date: 20160608
  Transmission Date: 20160815
  Serious: Yes (Hospitalization)
  Sender: FDA-Public Use
  Company Number: FR-PFIZER INC-2016284465

PATIENT
  Age: 36 Year
  Sex: Male

DRUGS (4)
  1. TRUVADA [Suspect]
     Active Substance: EMTRICITABINE\TENOFOVIR DISOPROXIL FUMARATE
     Indication: HIV INFECTION
     Dosage: 1 DF OF 200 MG/245 MG, 1X/DAY
     Route: 048
     Dates: start: 20090301
  2. NORVIR [Suspect]
     Active Substance: RITONAVIR
     Dosage: 100 MG, 1X/DAY
     Route: 048
     Dates: start: 20090301
  3. REYATAZ [Suspect]
     Active Substance: ATAZANAVIR SULFATE
     Indication: HIV INFECTION
     Dosage: 300 MG, 1X/DAY
     Route: 048
     Dates: start: 20090301
  4. EFFEXOR LP [Suspect]
     Active Substance: VENLAFAXINE HYDROCHLORIDE
     Indication: MAJOR DEPRESSION
     Dosage: 150 MG, 1X/DAY
     Route: 048
     Dates: start: 2004

REACTIONS (2)
  - Mitral valve disease [Recovered/Resolved with Sequelae]
  - Pulmonary arterial hypertension [Not Recovered/Not Resolved]

NARRATIVE: CASE EVENT DATE: 20101004
